FAERS Safety Report 13249920 (Version 1)
Quarter: 2017Q1

REPORT INFORMATION
  Report Type: Spontaneous
  Country: US (occurrence: US)
  Receive Date: 20170218
  Receipt Date: 20170218
  Transmission Date: 20170428
  Serious: No
  Sender: FDA-Public Use
  Company Number: US-ALLERGAN-1664026US

PATIENT
  Age: 67 Year
  Sex: Female

DRUGS (3)
  1. SYSTANE (HYPROMELLOSE 2910 (4000 MPA.S)) [Concomitant]
     Active Substance: HYPROMELLOSE 2910 (4000 MPA.S)
     Indication: DRY EYE
     Dosage: UNK
     Route: 047
     Dates: start: 2016
  2. RESTASIS [Suspect]
     Active Substance: CYCLOSPORINE
     Indication: DRY EYE
     Dosage: UNK
     Route: 047
     Dates: start: 201506, end: 201604
  3. INSULIN [Concomitant]
     Active Substance: INSULIN NOS
     Indication: DIABETES MELLITUS
     Dosage: UNK
     Dates: start: 2006

REACTIONS (7)
  - Drug dose omission [Unknown]
  - Device malfunction [Not Recovered/Not Resolved]
  - Punctal plug insertion [Recovered/Resolved]
  - Activities of daily living impaired [Not Recovered/Not Resolved]
  - Photophobia [Not Recovered/Not Resolved]
  - Eye discharge [Not Recovered/Not Resolved]
  - Vitreous floaters [Not Recovered/Not Resolved]

NARRATIVE: CASE EVENT DATE: 201507
